FAERS Safety Report 11787156 (Version 3)
Quarter: 2016Q1

REPORT INFORMATION
  Report Type: Spontaneous
  Country: JP (occurrence: JP)
  Receive Date: 20151130
  Receipt Date: 20160127
  Transmission Date: 20160525
  Serious: No
  Sender: FDA-Public Use
  Company Number: JP-GLAXOSMITHKLINE-JP2015JPN163614

PATIENT
  Age: 84 Year
  Sex: Female

DRUGS (5)
  1. BENAMBAX [Suspect]
     Active Substance: PENTAMIDINE
  2. SAMITREL [Suspect]
     Active Substance: ATOVAQUONE
     Indication: PNEUMOCYSTIS JIROVECII PNEUMONIA
     Dosage: UNK, QID
     Route: 048
     Dates: start: 20151112
  3. RIFAMPICIN [Concomitant]
     Active Substance: RIFAMPIN
     Dosage: 3 DF, QD
  4. ISCOTIN (JAPAN) [Concomitant]
     Dosage: 2 DF, QD
  5. BARACLUDE [Concomitant]
     Active Substance: ENTECAVIR
     Dosage: 1 DF, QD

REACTIONS (2)
  - Hypoglycaemia [Unknown]
  - Hypocalcaemia [Unknown]

NARRATIVE: CASE EVENT DATE: 20151112
